FAERS Safety Report 6615169-8 (Version None)
Quarter: 2010Q1

REPORT INFORMATION
  Report Type: 
  Country: None (occurrence: None)
  Receive Date: 20100305
  Receipt Date: 20100223
  Transmission Date: 20100710
  Serious: Yes (Hospitalization, Other)
  Sender: FDA-Public Use
  Company Number: PHHY2009BR49478

PATIENT
  Age: 45 Year
  Sex: Female
  Weight: 56 kg

DRUGS (6)
  1. TEGRETOL [Suspect]
     Indication: BIPOLAR DISORDER
     Dosage: 200 MG, 1 TABLET, THRICE A DAY
     Dates: start: 20020101
  2. TEGRETOL [Suspect]
     Dosage: 200 MG, BID
  3. TIMOLOL MALEATE [Concomitant]
     Indication: GLAUCOMA
     Dosage: 1 GTT, BID
  4. FOLIC ACID [Concomitant]
     Indication: ANAEMIA
     Dosage: 1 TABLET IN THE LUNCH
     Dates: start: 20090201
  5. PANTOPRAZOLE [Concomitant]
     Indication: ABDOMINAL DISCOMFORT
     Dosage: 20 MG, QD, 1 CAPSULE IN THE LUNCH
     Dates: start: 20090401
  6. TAMOXIFEN CITRATE [Concomitant]
     Indication: BREAST CANCER
     Dosage: 10 MG, 2 TABLETS IN THE MORNING

REACTIONS (5)
  - BLOOD OESTROGEN INCREASED [None]
  - BREAST CANCER [None]
  - BREAST OPERATION [None]
  - GAMMA-GLUTAMYLTRANSFERASE INCREASED [None]
  - GLAUCOMA [None]
